FAERS Safety Report 13703046 (Version 1)
Quarter: 2017Q2

REPORT INFORMATION
  Report Type: Spontaneous
  Country: US (occurrence: US)
  Receive Date: 20170629
  Receipt Date: 20170629
  Transmission Date: 20170830
  Serious: No
  Sender: FDA-Public Use
  Company Number: US-TARO-2017TAR00385

PATIENT
  Age: 52 Year
  Sex: Male
  Weight: 88.44 kg

DRUGS (3)
  1. TOPROL XL [Concomitant]
     Active Substance: METOPROLOL SUCCINATE
  2. ZOLOFT [Concomitant]
     Active Substance: SERTRALINE HYDROCHLORIDE
  3. METRONIDAZOLE GEL USP, 1% [Suspect]
     Active Substance: METRONIDAZOLE
     Indication: ROSACEA
     Dosage: UNK, 2X/DAY
     Route: 061
     Dates: start: 20170515, end: 201705

REACTIONS (6)
  - Erythema [Recovering/Resolving]
  - Product substitution issue [Recovered/Resolved]
  - Application site pain [Recovering/Resolving]
  - Rash macular [Recovering/Resolving]
  - Reaction to drug excipients [Recovering/Resolving]
  - Inappropriate schedule of drug administration [Recovered/Resolved]

NARRATIVE: CASE EVENT DATE: 201705
